FAERS Safety Report 5162440-5 (Version None)
Quarter: 2006Q4

REPORT INFORMATION
  Report Type: 
  Country: None (occurrence: None)
  Receive Date: 20061128
  Receipt Date: 20061128
  Transmission Date: 20070319
  Serious: No
  Sender: FDA-Public Use
  Company Number: None

PATIENT
  Age: 83 Year
  Sex: Female
  Weight: 99.7913 kg

DRUGS (13)
  1. AZITHROMYCIN [Suspect]
     Indication: PNEUMONITIS
     Dosage: 500MG IV
     Route: 042
     Dates: start: 20061121
  2. AZITHROMYCIN [Suspect]
     Indication: TRACHEOBRONCHITIS
     Dosage: 500MG IV
     Route: 042
     Dates: start: 20061121
  3. SOLU-MEDROL [Concomitant]
  4. LISINOPRIL [Concomitant]
  5. MAGNESIUM OXIDE [Concomitant]
  6. SIMVASTTEN [Concomitant]
  7. LASIX [Concomitant]
  8. CLONIDINE HCL [Concomitant]
  9. POTASSIUM CHLORIDE [Concomitant]
  10. SINGULAIR [Concomitant]
  11. SPIRONOLACTONE [Concomitant]
  12. METOPROLOL SUCCINATE [Concomitant]
  13. ONE A DAY MAXIMUM VITAMIN [Concomitant]

REACTIONS (4)
  - FEELING HOT [None]
  - HEADACHE [None]
  - LOGORRHOEA [None]
  - MALAISE [None]
